FAERS Safety Report 4497127-5 (Version None)
Quarter: 2004Q3

REPORT INFORMATION
  Report Type: 
  Country: None (occurrence: None)
  Receive Date: 20040927
  Receipt Date: 20040611
  Transmission Date: 20050211
  Serious: No
  Sender: FDA-Public Use
  Company Number: USA040568613

PATIENT
  Age: 11 Year
  Sex: Male
  Weight: 36 kg

DRUGS (2)
  1. STRATTERA [Suspect]
     Dosage: 40 MG DAY
     Dates: start: 20040406, end: 20040524
  2. ADDERALL 20 [Concomitant]

REACTIONS (8)
  - ABDOMINAL PAIN LOWER [None]
  - CHANGE OF BOWEL HABIT [None]
  - CHILLS [None]
  - DIARRHOEA [None]
  - DRUG INEFFECTIVE [None]
  - NAUSEA [None]
  - URINARY RETENTION [None]
  - WEIGHT DECREASED [None]
